FAERS Safety Report 12695023 (Version 1)
Quarter: 2016Q3

REPORT INFORMATION
  Report Type: Report from Study
  Country: NL (occurrence: NL)
  Receive Date: 20160829
  Receipt Date: 20160829
  Transmission Date: 20161109
  Serious: Yes (Hospitalization)
  Sender: FDA-Public Use
  Company Number: NL-ABBVIE-16K-114-1712141-00

PATIENT
  Sex: Male

DRUGS (1)
  1. DUODOPA [Suspect]
     Active Substance: CARBIDOPA\LEVODOPA
     Indication: PARKINSON^S DISEASE
     Dosage: MORNING DOSE: 4.2; CONTINUOUS DOSE: 2.8; EXTRA DOSE: 3.5
     Route: 050
     Dates: start: 20120113

REACTIONS (3)
  - Parkinson^s disease [Recovering/Resolving]
  - Fall [Recovered/Resolved]
  - Pain [Unknown]
